FAERS Safety Report 9751686 (Version 1)
Quarter: 2013Q4

REPORT INFORMATION
  Report Type: Spontaneous
  Country: US (occurrence: US)
  Receive Date: 20131213
  Receipt Date: 20131213
  Transmission Date: 20140711
  Serious: Yes (Other)
  Sender: FDA-Public Use
  Company Number: US-AMGEN-USASP2013086587

PATIENT
  Age: 47 Year
  Sex: Female

DRUGS (2)
  1. ENBREL [Suspect]
     Indication: RHEUMATOID ARTHRITIS
     Dosage: 50 MG, QWK
     Route: 065
     Dates: start: 20130821
  2. HYDROXYCHLOROQUINE [Concomitant]
     Dosage: UNK

REACTIONS (6)
  - Blindness transient [Not Recovered/Not Resolved]
  - Local swelling [Not Recovered/Not Resolved]
  - Tic [Recovered/Resolved]
  - Surgery [Not Recovered/Not Resolved]
  - Injection site pain [Recovered/Resolved]
  - Antinuclear antibody positive [Unknown]
